FAERS Safety Report 11483131 (Version 1)
Quarter: 2015Q3

REPORT INFORMATION
  Report Type: Spontaneous
  Country: US (occurrence: US)
  Receive Date: 20150903
  Receipt Date: 20150903
  Transmission Date: 20151125
  Serious: No
  Sender: FDA-Public Use
  Company Number: US-ELI_LILLY_AND_COMPANY-US201205009041

PATIENT
  Age: 66 Year
  Sex: Male

DRUGS (7)
  1. PERCOCET [Concomitant]
     Active Substance: ACETAMINOPHEN\OXYCODONE HYDROCHLORIDE
     Dosage: UNK, BID
  2. CLONAZEPAM. [Concomitant]
     Active Substance: CLONAZEPAM
  3. METFORMIN [Concomitant]
     Active Substance: METFORMIN HYDROCHLORIDE
     Dosage: 500 MG, BID
  4. CYMBALTA [Suspect]
     Active Substance: DULOXETINE HYDROCHLORIDE
     Dosage: 60 MG, UNK
     Dates: end: 20120519
  5. BENAZEPRIL [Concomitant]
     Active Substance: BENAZEPRIL HYDROCHLORIDE
  6. DILTIAZEM                          /00489701/ [Concomitant]
     Dosage: 180 MG, UNKNOWN
  7. CYMBALTA [Suspect]
     Active Substance: DULOXETINE HYDROCHLORIDE
     Indication: DEPRESSION
     Dosage: 30 MG, QD

REACTIONS (14)
  - Nausea [Unknown]
  - Nervousness [Unknown]
  - Platelet count decreased [Unknown]
  - Abnormal dreams [Unknown]
  - Insomnia [Unknown]
  - Drug dispensing error [Recovered/Resolved]
  - Feeling abnormal [Unknown]
  - Dysarthria [Unknown]
  - Hypersomnia [Unknown]
  - Decreased appetite [Unknown]
  - Tremor [Unknown]
  - Negative thoughts [Unknown]
  - Eye disorder [Unknown]
  - Weight decreased [Unknown]
